FAERS Safety Report 22218409 (Version 1)
Quarter: 2023Q2

REPORT INFORMATION
  Report Type: Spontaneous
  Country: US (occurrence: US)
  Receive Date: 20230417
  Receipt Date: 20230417
  Transmission Date: 20230721
  Serious: Yes (Other)
  Sender: FDA-Public Use
  Company Number: US-PFIZER INC-PV202300066737

PATIENT
  Age: 68 Year
  Sex: Male

DRUGS (3)
  1. RITUXIMAB [Suspect]
     Active Substance: RITUXIMAB
     Indication: Waldenstrom^s macroglobulinaemia
     Dosage: 375 MG/M2, CYCLIC (ON DAY1 OF EACH CYCLE)
  2. BENDAMUSTINE [Concomitant]
     Active Substance: BENDAMUSTINE
     Indication: Waldenstrom^s macroglobulinaemia
     Dosage: 90 MG/M2, CYCLIC (ON DAYS1 AND 2 OF EACH CYCLE)
  3. ALLOPURINOL [Concomitant]
     Active Substance: ALLOPURINOL
     Indication: Tumour lysis syndrome
     Dosage: UNK

REACTIONS (2)
  - Cryoglobulinaemia [Recovered/Resolved]
  - Off label use [Unknown]
